FAERS Safety Report 17203288 (Version 1)
Quarter: 2019Q4

REPORT INFORMATION
  Report Type: Spontaneous
  Country: US (occurrence: US)
  Receive Date: 20191226
  Receipt Date: 20191226
  Transmission Date: 20200122
  Serious: No
  Sender: FDA-Public Use
  Company Number: US-UPSHER-SMITH LABORATORIES, LLC-2018USL00589

PATIENT
  Sex: Female

DRUGS (2)
  1. POTASSIUM CHLORIDE. [Suspect]
     Active Substance: POTASSIUM CHLORIDE
  2. KLOR-CON M [Suspect]
     Active Substance: POTASSIUM CHLORIDE

REACTIONS (3)
  - Malaise [Unknown]
  - Vomiting projectile [Unknown]
  - Haemorrhage [Unknown]
